FAERS Safety Report 10029561 (Version 1)
Quarter: 2014Q1

REPORT INFORMATION
  Report Type: Spontaneous
  Country: US (occurrence: None)
  Receive Date: 20140320
  Receipt Date: 20140320
  Transmission Date: 20141002
  Serious: Yes (Hospitalization)
  Sender: FDA-Public Use
  Company Number: None

PATIENT
  Age: 31 Year
  Sex: Female
  Weight: 65.77 kg

DRUGS (2)
  1. BACTRIM [Suspect]
     Indication: STAPHYLOCOCCAL INFECTION
     Route: 048
     Dates: start: 20140220, end: 20140227
  2. BACTROBAN [Suspect]
     Dosage: 2/DAY TWICE DAILY APPLIED TO A SURFACE, USUALLY THE SKIN
     Dates: start: 20140220, end: 20140227

REACTIONS (1)
  - Drug hypersensitivity [None]
